FAERS Safety Report 15160951 (Version 1)
Quarter: 2018Q3

REPORT INFORMATION
  Report Type: Spontaneous
  Country: US (occurrence: US)
  Receive Date: 20180718
  Receipt Date: 20180718
  Transmission Date: 20181010
  Serious: Yes (Other)
  Sender: FDA-Public Use
  Company Number: US-TEVA-2018-US-926523

PATIENT
  Age: 26 Year
  Sex: Female

DRUGS (1)
  1. MOXIFLOXACIN. [Suspect]
     Active Substance: MOXIFLOXACIN
     Dosage: WITH 32OZ PLACEBO?CONTROL DRINK FOR ANALYSING THE EFFECT OF ENERGY DRINKS ON THE HEART
     Route: 048

REACTIONS (1)
  - Electrocardiogram QT prolonged [Unknown]
